FAERS Safety Report 7719084-8 (Version None)
Quarter: 2011Q3

REPORT INFORMATION
  Report Type: 
  Country: None (occurrence: None)
  Receive Date: 20110830
  Receipt Date: 20110822
  Transmission Date: 20111222
  Serious: Yes (Other)
  Sender: FDA-Public Use
  Company Number: US-JNJFOC-20110711071

PATIENT
  Sex: Male
  Weight: 81.65 kg

DRUGS (15)
  1. NUCYNTA [Suspect]
     Indication: PAIN IN EXTREMITY
     Dosage: ONCE DAILY AT BED TIME
     Route: 048
     Dates: start: 20110717
  2. CALTRATE 600 D [Concomitant]
     Indication: NUTRITIONAL SUPPORT
     Route: 065
     Dates: start: 20110717
  3. MULTI-VITAMINS [Concomitant]
     Indication: NUTRITIONAL SUPPORT
     Route: 065
     Dates: start: 20110717
  4. LANTUS [Concomitant]
     Indication: DIABETES MELLITUS
     Dosage: 20 IU AM/40 IU PM
     Route: 058
     Dates: start: 20110717
  5. NEXIUM [Concomitant]
     Indication: GASTROOESOPHAGEAL REFLUX DISEASE
     Route: 065
     Dates: start: 20110717
  6. VITAMIN D [Concomitant]
     Indication: NUTRITIONAL SUPPORT
     Route: 065
     Dates: start: 20110717
  7. NORVASC [Concomitant]
     Indication: HYPERTENSION
     Route: 048
     Dates: start: 20110717
  8. ZOCOR [Concomitant]
     Indication: BLOOD CHOLESTEROL ABNORMAL
     Route: 048
     Dates: start: 20110717
  9. AMARYL [Concomitant]
     Indication: DIABETES MELLITUS
     Route: 048
     Dates: start: 20110717
  10. BENICAR [Concomitant]
     Indication: HYPERTENSION
     Route: 048
     Dates: start: 20110717
  11. HUMALOG [Concomitant]
     Indication: DIABETES MELLITUS
     Dosage: 20 IU AM/40 IU PM
     Route: 058
     Dates: start: 20110717
  12. PLAVIX [Concomitant]
     Indication: THROMBOSIS PROPHYLAXIS
     Route: 048
     Dates: start: 20110717
  13. ASPIRIN [Concomitant]
     Indication: THROMBOSIS PROPHYLAXIS
     Route: 048
     Dates: start: 20110717
  14. NIACIN [Concomitant]
     Indication: HIGH DENSITY LIPOPROTEIN DECREASED
     Route: 065
     Dates: start: 20110717
  15. PAXIL [Concomitant]
     Indication: OBSESSIVE-COMPULSIVE DISORDER
     Route: 065
     Dates: start: 20110717

REACTIONS (2)
  - BLOOD GLUCOSE INCREASED [None]
  - SOMNOLENCE [None]
